FAERS Safety Report 5722350-9 (Version None)
Quarter: 2008Q2

REPORT INFORMATION
  Report Type: 
  Country: None (occurrence: None)
  Receive Date: 20080425
  Receipt Date: 20080416
  Transmission Date: 20081010
  Serious: Yes (Life-Threatening, Hospitalization)
  Sender: FDA-Public Use
  Company Number: 20085045

PATIENT
  Sex: Male

DRUGS (1)
  1. LIORESAL [Suspect]
     Indication: MUSCLE SPASTICITY
     Dosage: 840 MCG, DAILY, INTRATHECAL
     Route: 037

REACTIONS (3)
  - HYPERSENSITIVITY [None]
  - JOINT STIFFNESS [None]
  - SWELLING [None]
